FAERS Safety Report 18850822 (Version 1)
Quarter: 2021Q1

REPORT INFORMATION
  Report Type: Spontaneous
  Country: CA (occurrence: CA)
  Receive Date: 20210204
  Receipt Date: 20210204
  Transmission Date: 20210420
  Serious: Yes (Hospitalization, Other)
  Sender: FDA-Public Use
  Company Number: CA-JNJFOC-20210204957

PATIENT
  Age: 74 Year
  Sex: Male
  Weight: 81 kg

DRUGS (7)
  1. PREDNISONE. [Concomitant]
     Active Substance: PREDNISONE
     Route: 065
  2. REGN 2810 [Concomitant]
     Active Substance: CEMIPLIMAB
     Route: 065
  3. PREDNISONE. [Concomitant]
     Active Substance: PREDNISONE
     Route: 065
  4. MESALAZINE [Concomitant]
     Active Substance: MESALAMINE
     Route: 065
  5. REGN 2810 [Concomitant]
     Active Substance: CEMIPLIMAB
     Route: 065
  6. REMICADE [Suspect]
     Active Substance: INFLIXIMAB
     Indication: COLITIS ULCERATIVE
     Route: 042
  7. ASACOL [Concomitant]
     Active Substance: MESALAMINE
     Route: 065

REACTIONS (3)
  - Off label use [Not Recovered/Not Resolved]
  - Clostridium difficile infection [Not Recovered/Not Resolved]
  - Condition aggravated [Not Recovered/Not Resolved]
